FAERS Safety Report 9501298 (Version 2)
Quarter: 2013Q3

REPORT INFORMATION
  Report Type: Spontaneous
  Country: IE (occurrence: IE)
  Receive Date: 20130905
  Receipt Date: 20130909
  Transmission Date: 20140515
  Serious: Yes (Other)
  Sender: FDA-Public Use
  Company Number: IE-BIOMARINAP-IE-2013-101431

PATIENT
  Sex: Male

DRUGS (4)
  1. ALDURAZYME [Suspect]
     Indication: MUCOPOLYSACCHARIDOSIS I
     Dosage: 4000 IU, QW
     Route: 042
     Dates: start: 20130812
  2. WARFARIN [Concomitant]
     Indication: PRODUCT USED FOR UNKNOWN INDICATION
     Dosage: UNK
  3. DIGOXIN [Concomitant]
     Indication: PRODUCT USED FOR UNKNOWN INDICATION
     Dosage: UNK
  4. FUROSEMIDE [Concomitant]
     Indication: PRODUCT USED FOR UNKNOWN INDICATION
     Dosage: UNK

REACTIONS (7)
  - Staphylococcus test positive [Unknown]
  - Medical device complication [Unknown]
  - Ocular icterus [Unknown]
  - Lethargy [Unknown]
  - Gastrointestinal pain [Unknown]
  - Vomiting [Unknown]
  - Blood pressure decreased [Unknown]
